FAERS Safety Report 7774594-2 (Version None)
Quarter: 2011Q3

REPORT INFORMATION
  Report Type: 
  Country: None (occurrence: None)
  Receive Date: 20110923
  Receipt Date: 20110920
  Transmission Date: 20111222
  Serious: Yes (Disabling, Other)
  Sender: FDA-Public Use
  Company Number: US-PFIZER INC-US-WYE-H10626709

PATIENT
  Sex: Male
  Weight: 82 kg

DRUGS (3)
  1. LITHIUM [Concomitant]
     Dosage: 300 MG, 2X/DAY, ONE IN AM AND ONE IN EVENING
     Route: 065
     Dates: start: 20080406
  2. PRISTIQ [Suspect]
     Indication: BIPOLAR I DISORDER
     Dosage: 50 MG, 1X/DAY, 50 SAMPLES
     Route: 048
     Dates: start: 20090306, end: 20090101
  3. GEODON [Concomitant]
     Dosage: 20 MG, 20 SAMPLES
     Route: 065
     Dates: start: 20080604

REACTIONS (9)
  - DELUSION [None]
  - DEPRESSION [None]
  - MENTAL DISORDER [None]
  - HALLUCINATION [None]
  - MALAISE [None]
  - ABNORMAL BEHAVIOUR [None]
  - PERSONALITY CHANGE [None]
  - MANIA [None]
  - PSYCHOTIC DISORDER [None]
